FAERS Safety Report 10038096 (Version 1)
Quarter: 2014Q1

REPORT INFORMATION
  Report Type: Spontaneous
  Country: US (occurrence: None)
  Receive Date: 20140306
  Receipt Date: 20140306
  Transmission Date: 20141002
  Serious: Yes (Other)
  Sender: FDA-Public Use
  Company Number: 163-21880-13082860

PATIENT
  Age: 73 Year
  Sex: Male

DRUGS (6)
  1. REVLIMID [Suspect]
     Indication: PLASMA CELL MYELOMA
     Route: 048
     Dates: start: 20120827
  2. ONGYLZA (SAXAGLIPTIN) [Concomitant]
  3. ZOMETA (ZOLEDRONIC ACID) [Concomitant]
  4. LIDOCAINE/PRILOCAINE (EMLA) (CREAM) [Concomitant]
  5. VALTREX (VALACICLOVIR HYDROCHLORIDE) [Concomitant]
  6. ACTOPLUS MET (MOPADAY) [Concomitant]

REACTIONS (2)
  - Deep vein thrombosis [None]
  - Oral mucosal blistering [None]
